FAERS Safety Report 7618285-7 (Version None)
Quarter: 2011Q3

REPORT INFORMATION
  Report Type: 
  Country: None (occurrence: None)
  Receive Date: 20110718
  Receipt Date: 20110201
  Transmission Date: 20111222
  Serious: Yes (Life-Threatening, Hospitalization)
  Sender: FDA-Public Use
  Company Number: CA-ROCHE-736869

PATIENT
  Sex: Female
  Weight: 88.3 kg

DRUGS (7)
  1. LEVOTHYROXINE SODIUM [Concomitant]
     Dates: start: 20060101
  2. BEVACIZUMAB [Suspect]
     Indication: BREAST CANCER
     Dosage: TOTAL DOSE: 1350 MG LAST DOSE PRIOR TO SAE: 13 OCTOBER 2010 FORM: VIALS
     Route: 042
     Dates: start: 20101013
  3. TRASTUZUMAB [Suspect]
     Indication: BREAST CANCER
     Dosage: LOADING DOSE: 8 MG/KG TOTAL DOSE: 720 MG LAST DOSE PRIOR TO SAE: 13 OCTOBER 2010 FORM: VIALS
     Route: 042
     Dates: start: 20101013
  4. CARBOPLATIN [Suspect]
     Indication: BREAST CANCER
     Dosage: DOSE LEVEL: 6 AUC TOTAL DOSE: 810 MG LAST DOSE PRIOR TO SAE: 13 OCTOBER 2010 FORM: VIALS
     Route: 042
     Dates: start: 20101013
  5. NEXIUM [Concomitant]
     Dates: start: 20100914
  6. DOCETAXEL [Suspect]
     Indication: BREAST CANCER
     Dosage: TOTAL DOSE: 150 MG LAST DOSE PRIOR TO SAE: 13 OCTOBER 2010 FORM: VIALS
     Route: 042
     Dates: start: 20101013
  7. PERCOCET [Concomitant]
     Dates: start: 20100914

REACTIONS (2)
  - FEBRILE NEUTROPENIA [None]
  - CAECITIS [None]
